FAERS Safety Report 26209995 (Version 1)
Quarter: 2025Q4

REPORT INFORMATION
  Report Type: Spontaneous
  Country: US (occurrence: US)
  Receive Date: 20251229
  Receipt Date: 20251229
  Transmission Date: 20260117
  Serious: No
  Sender: SYMOGEN
  Company Number: US-PARTNER THERAPEUTICS-2025PTX00074

PATIENT
  Sex: Female

DRUGS (1)
  1. ZENOCUTUZUMAB [Suspect]
     Active Substance: ZENOCUTUZUMAB
     Dosage: CYCLE 1

REACTIONS (1)
  - Rash maculo-papular [Unknown]
